FAERS Safety Report 6944654-4 (Version None)
Quarter: 2010Q3

REPORT INFORMATION
  Report Type: 
  Country: None (occurrence: None)
  Receive Date: 20100827
  Receipt Date: 20100823
  Transmission Date: 20110219
  Serious: Yes (Death)
  Sender: FDA-Public Use
  Company Number: PHHY2010US55985

PATIENT
  Sex: Female
  Weight: 59.6 kg

DRUGS (5)
  1. EXJADE [Suspect]
     Indication: MYELODYSPLASTIC SYNDROME
     Dosage: 1250 MG /DAILY
     Route: 048
     Dates: start: 20100521
  2. ARANESP [Concomitant]
  3. MULTI-VITAMINS [Concomitant]
  4. LANTUS [Concomitant]
  5. LISINOPRIL [Concomitant]

REACTIONS (1)
  - DEATH [None]
